FAERS Safety Report 7914252-4 (Version None)
Quarter: 2011Q4

REPORT INFORMATION
  Report Type: 
  Country: None (occurrence: None)
  Receive Date: 20111114
  Receipt Date: 20111114
  Transmission Date: 20120403
  Serious: Yes (Other)
  Sender: FDA-Public Use
  Company Number: None

PATIENT
  Sex: Male
  Weight: 26.9 kg

DRUGS (2)
  1. KEPPRA [Suspect]
     Indication: CONVULSION
     Dosage: 7.5 ML BID PO
     Route: 048
     Dates: start: 20060101
  2. KEPPRA [Suspect]
     Indication: CEREBRAL PALSY
     Dosage: 7.5 ML BID PO
     Route: 048
     Dates: start: 20060101

REACTIONS (1)
  - CONVULSION [None]
